FAERS Safety Report 8600384-4 (Version None)
Quarter: 2012Q3

REPORT INFORMATION
  Report Type: 
  Country: None (occurrence: None)
  Receive Date: 20120817
  Receipt Date: 20120810
  Transmission Date: 20120928
  Serious: No
  Sender: FDA-Public Use
  Company Number: US-PFIZER INC-2012195781

PATIENT
  Age: 75 Year
  Sex: Male

DRUGS (1)
  1. SUTENT [Suspect]
     Indication: RENAL DISORDER
     Dosage: 50 MG, DAILY

REACTIONS (2)
  - PLATELET COUNT DECREASED [None]
  - YELLOW SKIN [None]
